FAERS Safety Report 5486143-2 (Version None)
Quarter: 2007Q4

REPORT INFORMATION
  Report Type: 
  Country: None (occurrence: None)
  Receive Date: 20071015
  Receipt Date: 20071003
  Transmission Date: 20080405
  Serious: Yes (Death, Life-Threatening)
  Sender: FDA-Public Use
  Company Number: FI-PFIZER INC-2007082612

PATIENT
  Age: 26 Year
  Sex: Male

DRUGS (4)
  1. LYRICA [Suspect]
  2. SUBUTEX [Suspect]
  3. ALCOHOL [Suspect]
  4. DIAPAM [Concomitant]

REACTIONS (3)
  - DRUG ABUSER [None]
  - MULTIPLE DRUG OVERDOSE INTENTIONAL [None]
  - OFF LABEL USE [None]
